FAERS Safety Report 4919234-2 (Version None)
Quarter: 2006Q1

REPORT INFORMATION
  Report Type: 
  Country: None (occurrence: None)
  Receive Date: 20060113
  Receipt Date: 20051205
  Transmission Date: 20060701
  Serious: No
  Sender: FDA-Public Use
  Company Number: 2005SP004280

PATIENT
  Age: 34 Year
  Sex: Female
  Weight: 53.0709 kg

DRUGS (3)
  1. LUNESTA [Suspect]
     Dosage: HS
     Dates: start: 20051123, end: 20051201
  2. ORTHO-NOVUM 7/7/7-21 [Concomitant]
  3. XANAX [Concomitant]

REACTIONS (2)
  - DRUG INEFFECTIVE [None]
  - INSOMNIA [None]
